FAERS Safety Report 4816586-9 (Version None)
Quarter: 2005Q4

REPORT INFORMATION
  Report Type: 
  Country: None (occurrence: None)
  Receive Date: 20051028
  Receipt Date: 20051014
  Transmission Date: 20060501
  Serious: Yes (Death)
  Sender: FDA-Public Use
  Company Number: USA-2005-0021622

PATIENT
  Age: 79 Year
  Sex: Male

DRUGS (13)
  1. MORPHINE [Suspect]
     Indication: PAIN
     Dates: start: 20050909, end: 20050914
  2. ATIVAN [Suspect]
     Indication: ANXIETY
     Dates: start: 20050909, end: 20050914
  3. VERAPAMIL [Concomitant]
  4. HYDROCHLOROTHIAZIDE/TRIAMTERNE( HYDROCHLOROTHIAZIDE, TRIAMTERENE) [Concomitant]
  5. VITAMINS [Concomitant]
  6. AMBIEN [Concomitant]
  7. LORAZEPAM [Concomitant]
  8. REGLAN [Concomitant]
  9. ZANTAC [Concomitant]
  10. DECADRON (DEXAMENTASONE0 [Concomitant]
  11. DONNATAL ELIXIR (ATROPINE SULFATE, HYOSCINE HYDROBROMIDE, HYOSCYAMINE [Concomitant]
  12. TOPROL-XL [Concomitant]
  13. LISINOPRIL [Concomitant]

REACTIONS (15)
  - CEREBRAL ISCHAEMIA [None]
  - CONFUSIONAL STATE [None]
  - DYSPNOEA [None]
  - GOITRE [None]
  - MALIGNANT NEOPLASM PROGRESSION [None]
  - MENTAL STATUS CHANGES [None]
  - MESOTHELIOMA MALIGNANT [None]
  - METASTASES TO LUNG [None]
  - METASTASIS [None]
  - OXYGEN SATURATION DECREASED [None]
  - PLEURAL EFFUSION [None]
  - PLEURAL FIBROSIS [None]
  - PNEUMONIA [None]
  - SOMNOLENCE [None]
  - WHITE BLOOD CELL COUNT INCREASED [None]
